FAERS Safety Report 16976664 (Version 2)
Quarter: 2019Q4

REPORT INFORMATION
  Report Type: Spontaneous
  Country: RS (occurrence: RS)
  Receive Date: 20191030
  Receipt Date: 20191120
  Transmission Date: 20200122
  Serious: Yes (Other)
  Sender: FDA-Public Use
  Company Number: RS-ELI_LILLY_AND_COMPANY-RS201910012056

PATIENT
  Age: 64 Year
  Sex: Female

DRUGS (4)
  1. FLUOROURACIL. [Concomitant]
     Active Substance: FLUOROURACIL
     Indication: COLON CANCER
     Dosage: UNK, UNKNOWN
     Route: 065
     Dates: start: 201904, end: 201907
  2. OXALIPLATIN. [Concomitant]
     Active Substance: OXALIPLATIN
     Indication: COLON CANCER
     Dosage: UNK, UNKNOWN
     Route: 065
     Dates: start: 201904, end: 201907
  3. ERBITUX [Suspect]
     Active Substance: CETUXIMAB
     Indication: COLON CANCER
     Dosage: UNK, WEEKLY (1/W)
     Route: 065
     Dates: start: 201904, end: 201907
  4. FOLINIC ACID [Concomitant]
     Active Substance: LEUCOVORIN
     Indication: COLON CANCER
     Dosage: UNK, UNKNOWN
     Route: 065
     Dates: start: 201904, end: 201907

REACTIONS (1)
  - Metastases to liver [Unknown]

NARRATIVE: CASE EVENT DATE: 201908
